FAERS Safety Report 13976870 (Version 2)
Quarter: 2017Q3

REPORT INFORMATION
  Report Type: Report from Study
  Country: DE (occurrence: DE)
  Receive Date: 20170915
  Receipt Date: 20170928
  Transmission Date: 20171128
  Serious: Yes (Hospitalization)
  Sender: FDA-Public Use
  Company Number: DE-BIOGEN-2017BI00428781

PATIENT
  Age: 51 Year
  Sex: Female
  Weight: 96 kg

DRUGS (6)
  1. PROGESTERON [Concomitant]
     Active Substance: PROGESTERONE
     Indication: MENOPAUSAL SYMPTOMS
     Route: 065
  2. BISOPROLOL [Concomitant]
     Active Substance: BISOPROLOL
     Indication: TACHYCARDIA
     Dosage: 2-0-1
     Route: 065
  3. ZINBRYTA [Suspect]
     Active Substance: DACLIZUMAB
     Indication: MULTIPLE SCLEROSIS
     Route: 058
     Dates: start: 20170130
  4. DEKRISTOL [Concomitant]
     Active Substance: CHOLECALCIFEROL
     Indication: VITAMIN D DEFICIENCY
     Route: 065
     Dates: start: 201703
  5. OMEPRAZOLE. [Concomitant]
     Active Substance: OMEPRAZOLE
     Indication: EPIGASTRIC DISCOMFORT
     Dosage: 1-0-0
     Route: 048
  6. SPASMEX [Concomitant]
     Active Substance: TROSPIUM CHLORIDE
     Indication: MICTURITION URGENCY
     Route: 065
     Dates: start: 201703

REACTIONS (1)
  - Multiple sclerosis relapse [Recovered/Resolved with Sequelae]

NARRATIVE: CASE EVENT DATE: 20170428
